FAERS Safety Report 11307067 (Version 2)
Quarter: 2015Q3

REPORT INFORMATION
  Report Type: Spontaneous
  Country: US (occurrence: US)
  Receive Date: 20150723
  Receipt Date: 20150915
  Transmission Date: 20151125
  Serious: Yes (Other)
  Sender: FDA-Public Use
  Company Number: US-BAYER-2015-262861

PATIENT
  Age: 57 Year
  Sex: Male
  Weight: 109.3 kg

DRUGS (10)
  1. SOTALOL HYDROCHLORIDE. [Concomitant]
     Active Substance: SOTALOL HYDROCHLORIDE
     Dosage: 80 MG, BID
     Route: 048
     Dates: start: 200008
  2. XARELTO [Suspect]
     Active Substance: RIVAROXABAN
     Indication: ATRIAL FIBRILLATION
  3. ACETYLSALICYLIC ACID({=100 MG) [Suspect]
     Active Substance: ASPIRIN
     Indication: PRODUCT USED FOR UNKNOWN INDICATION
     Dosage: 81 MG, QD
     Route: 048
  4. DIOVAN [Concomitant]
     Active Substance: VALSARTAN
     Dosage: 40 MG, QD
     Route: 048
  5. NITROGLYCERIN. [Concomitant]
     Active Substance: NITROGLYCERIN
     Indication: MYOCARDIAL INFARCTION
     Dosage: .4 MG, UNK
     Route: 060
  6. PROTONIX [Concomitant]
     Active Substance: PANTOPRAZOLE SODIUM
     Dosage: 40 MG, QD
     Route: 048
  7. XARELTO [Suspect]
     Active Substance: RIVAROXABAN
     Indication: CEREBROVASCULAR ACCIDENT PROPHYLAXIS
     Dosage: 20 MG, QD
     Route: 048
     Dates: start: 20130508, end: 201309
  8. NIASPAN [Concomitant]
     Active Substance: NIACIN
     Dosage: 1000 MG, QD
     Route: 048
     Dates: start: 200008
  9. CRESTOR [Concomitant]
     Active Substance: ROSUVASTATIN CALCIUM
     Dosage: 40 MG, QD
     Route: 048
     Dates: start: 200008
  10. COREG [Concomitant]
     Active Substance: CARVEDILOL
     Dosage: .5 MG, BID
     Route: 048

REACTIONS (6)
  - Melaena [Recovered/Resolved]
  - Internal haemorrhage [Recovered/Resolved]
  - Fatigue [Unknown]
  - Dyspepsia [Unknown]
  - Urine abnormality [Unknown]
  - Constipation [Unknown]

NARRATIVE: CASE EVENT DATE: 201305
